FAERS Safety Report 21881136 (Version 2)
Quarter: 2023Q1

REPORT INFORMATION
  Report Type: Spontaneous
  Country: UZ (occurrence: UZ)
  Receive Date: 20230118
  Receipt Date: 20230204
  Transmission Date: 20230418
  Serious: Yes (Death, Hospitalization)
  Sender: FDA-Public Use
  Company Number: UZ-JNJFOC-20230119679

PATIENT
  Age: 70 Year
  Sex: Female
  Weight: 96 kg

DRUGS (6)
  1. SIRTURO [Suspect]
     Active Substance: BEDAQUILINE FUMARATE
     Indication: Tuberculosis
     Dosage: 400 -} 200 3/7
     Route: 048
     Dates: start: 20221027, end: 20230104
  2. LINEZOLID [Suspect]
     Active Substance: LINEZOLID
     Indication: Tuberculosis
     Dosage: 600
     Route: 048
     Dates: start: 20221027, end: 20230104
  3. MOXIFLOXACIN [Suspect]
     Active Substance: MOXIFLOXACIN
     Indication: Tuberculosis
     Dosage: 400
     Route: 048
     Dates: start: 20221027, end: 20230104
  4. PRETOMANID [Suspect]
     Active Substance: PRETOMANID
     Indication: Tuberculosis
     Dosage: 200
     Route: 048
     Dates: start: 20221027, end: 20230104
  5. ENALAPRIL [Concomitant]
     Active Substance: ENALAPRIL
     Indication: Hypertension
     Route: 048
  6. METFORMIN [Concomitant]
     Active Substance: METFORMIN HYDROCHLORIDE
     Indication: Type 2 diabetes mellitus
     Route: 048

REACTIONS (13)
  - Diabetic hyperglycaemic coma [Fatal]
  - Renal impairment [Unknown]
  - Chronic hepatitis [Unknown]
  - Cholecystitis chronic [Not Recovered/Not Resolved]
  - Pyelonephritis chronic [Not Recovered/Not Resolved]
  - Diabetes mellitus [Unknown]
  - Multiple organ dysfunction syndrome [Unknown]
  - Dyspnoea [Unknown]
  - Supraventricular extrasystoles [Unknown]
  - Dry mouth [Not Recovered/Not Resolved]
  - Back pain [Not Recovered/Not Resolved]
  - Blood pressure fluctuation [Not Recovered/Not Resolved]
  - Anaemia [Unknown]

NARRATIVE: CASE EVENT DATE: 20230103
